FAERS Safety Report 9612572 (Version 5)
Quarter: 2014Q4

REPORT INFORMATION
  Report Type: Spontaneous
  Country: JP (occurrence: JP)
  Receive Date: 20131010
  Receipt Date: 20141028
  Transmission Date: 20150529
  Serious: Yes (Death, Hospitalization)
  Sender: FDA-Public Use
  Company Number: PHHY2013JP113213

PATIENT
  Sex: Male

DRUGS (6)
  1. DEFERASIROX [Suspect]
     Active Substance: DEFERASIROX
     Indication: MYELODYSPLASTIC SYNDROME
     Dosage: 1000 MG, DAILY
     Route: 048
  2. DEFEROXAMINE [Suspect]
     Active Substance: DEFEROXAMINE\DEFEROXAMINE MESYLATE
     Dosage: 1000 MG, DAILY
     Route: 030
     Dates: start: 201302
  3. LOSARTAN [Concomitant]
     Active Substance: LOSARTAN
     Indication: PRODUCT USED FOR UNKNOWN INDICATION
     Route: 065
  4. DEFEROXAMINE [Suspect]
     Active Substance: DEFEROXAMINE\DEFEROXAMINE MESYLATE
     Dosage: 1000 MG, DAILY
     Route: 030
     Dates: start: 201211
  5. FUROSEMIDE. [Concomitant]
     Active Substance: FUROSEMIDE
     Indication: PRODUCT USED FOR UNKNOWN INDICATION
     Route: 065
  6. DEFEROXAMINE [Suspect]
     Active Substance: DEFEROXAMINE\DEFEROXAMINE MESYLATE
     Indication: MYELODYSPLASTIC SYNDROME
     Dosage: 1000 MG, DAILY
     Route: 030

REACTIONS (15)
  - Atrial fibrillation [Not Recovered/Not Resolved]
  - Serum ferritin increased [Unknown]
  - Cardiac failure [Fatal]
  - Hypersensitivity [Recovered/Resolved]
  - Sinus node dysfunction [Not Recovered/Not Resolved]
  - Drug ineffective [Unknown]
  - Dyspnoea [Fatal]
  - Sinus arrest [Unknown]
  - Left ventricular dysfunction [Not Recovered/Not Resolved]
  - Oedema peripheral [Fatal]
  - Weight increased [Fatal]
  - Cardiomyopathy [Not Recovered/Not Resolved]
  - Palpatory finding abnormal [Fatal]
  - Decreased appetite [Fatal]
  - Dizziness [Unknown]

NARRATIVE: CASE EVENT DATE: 2008
